FAERS Safety Report 23353039 (Version 1)
Quarter: 2023Q4

REPORT INFORMATION
  Report Type: Report from Study
  Country: US (occurrence: US)
  Receive Date: 20231230
  Receipt Date: 20231230
  Transmission Date: 20240110
  Serious: Yes (Death)
  Sender: FDA-Public Use
  Company Number: US-ABBVIE-5565489

PATIENT
  Sex: Male
  Weight: 104 kg

DRUGS (1)
  1. ALPHAGAN P [Suspect]
     Active Substance: BRIMONIDINE TARTRATE
     Indication: Glaucoma
     Dosage: FORM STRENGTH: 1.5 MILLIGRAM/MILLILITERS, ?FREQUENCY: ONE DROP ON EACH EYE THREE TIMES A DAY, ?ST...
     Route: 047
     Dates: end: 202311

REACTIONS (1)
  - Cardiac failure congestive [Fatal]

NARRATIVE: CASE EVENT DATE: 20200101
